FAERS Safety Report 4414811-X (Version None)
Quarter: 2004Q3

REPORT INFORMATION
  Report Type: 
  Country: None (occurrence: None)
  Receive Date: 20040804
  Receipt Date: 20031023
  Transmission Date: 20050211
  Serious: No
  Sender: FDA-Public Use
  Company Number: US-BRISTOL-MYERS SQUIBB COMPANY-12417952

PATIENT
  Age: 79 Year
  Sex: Male
  Weight: 98 kg

DRUGS (8)
  1. GLUCOVANCE [Suspect]
     Route: 048
     Dates: start: 20031022
  2. HYZAAR [Concomitant]
  3. ZYLOPRIM [Concomitant]
  4. COLCHICINE [Concomitant]
  5. ACCOLATE [Concomitant]
  6. FLOVENT [Concomitant]
  7. ALBUTEROL [Concomitant]
  8. FLONASE [Concomitant]

REACTIONS (1)
  - SOMNOLENCE [None]
